FAERS Safety Report 6925949-7 (Version None)
Quarter: 2010Q3

REPORT INFORMATION
  Report Type: 
  Country: None (occurrence: None)
  Receive Date: 20100816
  Receipt Date: 20100804
  Transmission Date: 20110219
  Serious: Yes (Life-Threatening, Other)
  Sender: FDA-Public Use
  Company Number: GB-PFIZER INC-2010098312

PATIENT
  Age: 47 Year
  Sex: Male
  Weight: 64 kg

DRUGS (5)
  1. PHENYTOIN SODIUM [Suspect]
     Indication: STATUS EPILEPTICUS
     Dosage: 1000 MG, UNK
     Route: 042
     Dates: start: 20100720, end: 20100720
  2. FLUCLOXACILLIN [Concomitant]
     Indication: CELLULITIS
     Dosage: 2 G, 4X/DAY
     Route: 042
  3. METOCLOPRAMIDE [Concomitant]
     Dosage: 10 MG, EVERY EIGHT HOURS
     Route: 042
  4. PABRINEX [Concomitant]
     Dosage: 1 DF, 1X/DAY
     Route: 042
  5. PANTOPRAZOLE [Concomitant]
     Dosage: 40 MG, 1X/DAY
     Route: 042

REACTIONS (1)
  - HYPOTENSION [None]
